FAERS Safety Report 9756706 (Version 2)
Quarter: 2014Q1

REPORT INFORMATION
  Report Type: Report from Study
  Country: TR (occurrence: TR)
  Receive Date: 20131213
  Receipt Date: 20140115
  Transmission Date: 20141002
  Serious: Yes (Hospitalization)
  Sender: FDA-Public Use
  Company Number: TR-ABBVIE-13P-161-1178947-00

PATIENT
  Age: 32 Year
  Sex: Male
  Weight: 87 kg

DRUGS (2)
  1. HUMIRA [Suspect]
     Indication: ANKYLOSING SPONDYLITIS
     Route: 058
     Dates: start: 20100927
  2. HUMIRA [Suspect]
     Dates: start: 20140107

REACTIONS (3)
  - Pulmonary oedema [Recovered/Resolved]
  - Brain injury [Recovered/Resolved]
  - Road traffic accident [Recovered/Resolved]
